FAERS Safety Report 21805497 (Version 1)
Quarter: 2023Q1

REPORT INFORMATION
  Report Type: Report from Study
  Country: FR (occurrence: FR)
  Receive Date: 20230102
  Receipt Date: 20230102
  Transmission Date: 20230417
  Serious: Yes (Congenital Anomaly, Other)
  Sender: FDA-Public Use
  Company Number: FR-Accord-293810

PATIENT

DRUGS (2)
  1. METHOTREXATE [Suspect]
     Active Substance: METHOTREXATE
  2. SULFASALAZINE [Suspect]
     Active Substance: SULFASALAZINE

REACTIONS (2)
  - Turner^s syndrome [Unknown]
  - Paternal exposure during pregnancy [Unknown]
